FAERS Safety Report 26065176 (Version 3)
Quarter: 2025Q4

REPORT INFORMATION
  Report Type: Spontaneous
  Country: EU (occurrence: EU)
  Receive Date: 20251119
  Receipt Date: 20251210
  Transmission Date: 20260118
  Serious: Yes (Other)
  Sender: BRACCO
  Company Number: EU-BRACCO-2025FR07962

PATIENT
  Age: 80 Year
  Sex: Female

DRUGS (4)
  1. IOPAMIRON [Suspect]
     Active Substance: IOPAMIDOL
     Indication: Infiltration anaesthesia
     Dosage: UNK, SINGLE
     Dates: start: 20251107, end: 20251107
  2. XYLOCAINE [Suspect]
     Active Substance: LIDOCAINE HYDROCHLORIDE
     Indication: Infiltration anaesthesia
     Dosage: PREVIOUSLY RECEIVED THE PRODUCT THREE TIMES IN 2022
  3. XYLOCAINE [Suspect]
     Active Substance: LIDOCAINE HYDROCHLORIDE
     Dosage: ONCE IN 2025
     Dates: start: 20251107
  4. PREDNISONE [Suspect]
     Active Substance: PREDNISONE
     Indication: Infiltration anaesthesia
     Dosage: 125 MG, ONE INJECTION
     Dates: start: 20251107

REACTIONS (6)
  - Off label use [Not Recovered/Not Resolved]
  - Loss of consciousness [Recovered/Resolved]
  - Feeling hot [Not Recovered/Not Resolved]
  - Back pain [Not Recovered/Not Resolved]
  - Malaise [Not Recovered/Not Resolved]
  - Urinary incontinence [Not Recovered/Not Resolved]

NARRATIVE: CASE EVENT DATE: 20251107
